FAERS Safety Report 10745429 (Version 2)
Quarter: 2015Q1

REPORT INFORMATION
  Report Type: Spontaneous
  Country: US (occurrence: US)
  Receive Date: 20150128
  Receipt Date: 20150212
  Transmission Date: 20150721
  Serious: Yes (Other)
  Sender: FDA-Public Use
  Company Number: US-PFIZER INC-2015031961

PATIENT
  Age: 73 Year
  Sex: Female
  Weight: 61 kg

DRUGS (1)
  1. CELEBREX [Suspect]
     Active Substance: CELECOXIB
     Indication: SCIATICA
     Dosage: 200 MG, AS NEEDED
     Route: 048
     Dates: start: 2014

REACTIONS (5)
  - Loss of consciousness [Unknown]
  - Gait disturbance [Unknown]
  - Somnolence [Not Recovered/Not Resolved]
  - Feeling drunk [Not Recovered/Not Resolved]
  - Dizziness [Not Recovered/Not Resolved]

NARRATIVE: CASE EVENT DATE: 2014
